FAERS Safety Report 8179826-7 (Version None)
Quarter: 2012Q1

REPORT INFORMATION
  Report Type: 
  Country: None (occurrence: None)
  Receive Date: 20120302
  Receipt Date: 20120228
  Transmission Date: 20120608
  Serious: Yes (Life-Threatening, Hospitalization)
  Sender: FDA-Public Use
  Company Number: US-CELGENEUS-163-21660-11112276

PATIENT
  Sex: Female
  Weight: 81.084 kg

DRUGS (14)
  1. LISINOPRIL [Concomitant]
     Route: 065
  2. ABRAXANE [Suspect]
     Indication: BREAST CANCER
     Dosage: 80 MILLIGRAM/SQ. METER
     Route: 041
     Dates: start: 20110304
  3. PACLITAXEL [Suspect]
     Indication: BREAST CANCER
     Dosage: 80 MILLIGRAM/SQ. METER
     Route: 041
     Dates: start: 20110304
  4. VITAMIN B-12 [Concomitant]
     Route: 065
     Dates: start: 20110618
  5. ESOMEPRAZOLE SODIUM [Concomitant]
     Route: 065
  6. METOPROLOL SUCCINATE [Concomitant]
     Route: 065
  7. BEVACIZUMAB [Suspect]
     Indication: BREAST CANCER
     Route: 041
     Dates: start: 20110304
  8. FOLIC ACID [Concomitant]
     Route: 065
  9. ASPIRIN [Concomitant]
     Route: 065
  10. DOXORUBICIN HCL [Suspect]
     Indication: BREAST CANCER
     Dosage: 60 MILLIGRAM/SQ. METER
     Route: 041
     Dates: start: 20110304
  11. VITAMIN B6 [Concomitant]
     Route: 065
     Dates: start: 20110618
  12. NEULASTA [Suspect]
     Indication: BREAST CANCER
     Dosage: 6 MILLIGRAM
     Route: 058
     Dates: start: 20110304
  13. CYCLOPHOSPHAMIDE [Suspect]
     Indication: BREAST CANCER
     Dosage: 600 MILLIGRAM/SQ. METER
     Route: 041
     Dates: start: 20110304
  14. ATORVASTATIN [Concomitant]
     Route: 065

REACTIONS (6)
  - LEFT VENTRICULAR DYSFUNCTION [None]
  - CARDIAC ARREST [None]
  - VENTRICULAR ARRHYTHMIA [None]
  - SINUS TACHYCARDIA [None]
  - ARRHYTHMIA SUPRAVENTRICULAR [None]
  - SINUS BRADYCARDIA [None]
